FAERS Safety Report 4407965-2 (Version None)
Quarter: 2004Q3

REPORT INFORMATION
  Report Type: 
  Country: None (occurrence: None)
  Receive Date: 20040716
  Receipt Date: 20040709
  Transmission Date: 20050211
  Serious: No
  Sender: FDA-Public Use
  Company Number: 2004219967JP

PATIENT
  Age: 56 Year
  Sex: Male

DRUGS (3)
  1. MEDROL [Suspect]
     Indication: IMMUNOSUPPRESSION
     Dosage: 12 MG, QD, ORAL
     Route: 048
     Dates: start: 20011004
  2. PROGRAF [Suspect]
     Indication: IMMUNOSUPPRESSION
     Dosage: 4.5 MG, QD
  3. CELLCEPT [Suspect]
     Indication: IMMUNOSUPPRESSION
     Dosage: 1000 MG, QD, ORAL
     Route: 048

REACTIONS (1)
  - UNEVALUABLE EVENT [None]
